FAERS Safety Report 8049594-8 (Version None)
Quarter: 2012Q1

REPORT INFORMATION
  Report Type: 
  Country: None (occurrence: None)
  Receive Date: 20120117
  Receipt Date: 20120106
  Transmission Date: 20120608
  Serious: Yes (Death, Hospitalization)
  Sender: FDA-Public Use
  Company Number: JP-ROCHE-1012988

PATIENT
  Sex: Female
  Weight: 44.2 kg

DRUGS (8)
  1. FELBINAC [Concomitant]
     Indication: RHEUMATOID ARTHRITIS
     Dosage: PROPER QUANTITY/SINGLE USE
     Route: 061
     Dates: start: 20110708
  2. CELECOXIB [Concomitant]
     Indication: RHEUMATOID ARTHRITIS
     Dosage: SINGLE USE
     Route: 048
     Dates: start: 20101227
  3. RISEDRONATE SODIUM [Concomitant]
     Indication: OSTEOPOROSIS
     Route: 048
     Dates: start: 20090630
  4. LANSOPRAZOLE [Concomitant]
     Indication: PROPHYLAXIS AGAINST GASTROINTESTINAL ULCER
     Dosage: SINGLE USE
     Route: 048
     Dates: start: 20110517
  5. ACTEMRA [Suspect]
     Dosage: [YASUKUSURI]
     Route: 042
     Dates: start: 20100906
  6. ACTEMRA [Suspect]
     Indication: RHEUMATOID ARTHRITIS
     Dosage: [YASUKUSURI]
     Route: 058
     Dates: start: 20110221
  7. LIPITOR [Concomitant]
     Indication: HYPERCHOLESTEROLAEMIA
     Route: 048
     Dates: start: 20111004
  8. CLARITHROMYCIN [Concomitant]
     Indication: BRONCHITIS
     Route: 048
     Dates: start: 20111004

REACTIONS (1)
  - GASTRIC CANCER [None]
